FAERS Safety Report 8958308 (Version 1)
Quarter: 2012Q4

REPORT INFORMATION
  Report Type: 
  Country: US (occurrence: US)
  Receive Date: 20121210
  Receipt Date: 20121210
  Transmission Date: 20130627
  Serious: No
  Sender: FDA-Public Use
  Company Number: US-009507513-1212USA001238

PATIENT
  Age: 52 Year
  Sex: Male

DRUGS (2)
  1. VICTRELIS [Suspect]
     Indication: HEPATITIS C
     Dosage: 800 mg, tid
     Route: 048
     Dates: start: 20120221
  2. PEGINTRON [Suspect]
     Dosage: UNK, qw
     Route: 058

REACTIONS (1)
  - Abdominal pain [Unknown]
